FAERS Safety Report 8908954 (Version 1)
Quarter: 2012Q4

REPORT INFORMATION
  Report Type: Report from Study
  Country: JP (occurrence: JP)
  Receive Date: 20121114
  Receipt Date: 20121114
  Transmission Date: 20130627
  Serious: Yes (Other)
  Sender: FDA-Public Use
  Company Number: JP-VERTEX PHARMACEUTICAL INC.-AE-2012-006241

PATIENT
  Age: 63 Year
  Sex: Male

DRUGS (13)
  1. VX-950 (TELAPREVIR) [Suspect]
     Indication: CHRONIC HEPATITIS C
     Dosage: 2250 mg, qd
     Route: 048
     Dates: start: 20120202, end: 20120425
  2. RIBAVIRIN [Suspect]
     Indication: CHRONIC HEPATITIS C
     Dosage: 800 mg, qd
     Route: 048
     Dates: start: 20120202, end: 20120308
  3. RIBAVIRIN [Suspect]
     Dosage: 400 mg, qd
     Route: 048
     Dates: start: 20120309, end: 20120321
  4. RIBAVIRIN [Suspect]
     Dosage: 200 mg, qd
     Route: 048
     Dates: start: 20120322, end: 20120426
  5. RIBAVIRIN [Suspect]
     Dosage: 400 mg, qd
     Route: 048
     Dates: start: 20120427, end: 20120510
  6. RIBAVIRIN [Suspect]
     Dosage: 600 mg, qd
     Route: 048
     Dates: start: 20120511, end: 20120614
  7. RIBAVIRIN [Suspect]
     Dosage: 800 mg, qd
     Route: 048
     Dates: start: 20120615, end: 20120718
  8. PEGINTERFERON ALFA-2B [Suspect]
     Indication: CHRONIC HEPATITIS C
     Dosage: 1.5 ?g/kg, qw
     Route: 058
     Dates: start: 20120202, end: 20120328
  9. PEGINTERFERON ALFA-2B [Suspect]
     Dosage: 0.7 ?g/kg, qw
     Route: 058
     Dates: start: 20120329, end: 20120404
  10. PEGINTERFERON ALFA-2B [Suspect]
     Dosage: 1.5 ?g/kg, qw
     Route: 058
     Dates: start: 20120405, end: 20120712
  11. OLMETEC [Concomitant]
     Dosage: 10 mg, qd
     Route: 048
  12. OMEPRAL /00661201/ [Concomitant]
     Dosage: 10 mg, qd
     Route: 048
  13. SELBEX [Concomitant]
     Dosage: 150 mg, qd
     Route: 048

REACTIONS (1)
  - White blood cell count decreased [Recovered/Resolved]
